FAERS Safety Report 4701152-6 (Version None)
Quarter: 2005Q2

REPORT INFORMATION
  Report Type: 
  Country: None (occurrence: None)
  Receive Date: 20050628
  Receipt Date: 20050620
  Transmission Date: 20051028
  Serious: Yes (Other)
  Sender: FDA-Public Use
  Company Number: S200500250

PATIENT
  Age: 83 Year
  Sex: Female

DRUGS (5)
  1. AMOXICILLIN [Suspect]
     Route: 048
  2. CLARITHROMYCIN [Suspect]
     Route: 065
  3. PROTON PUMP INHIBITOR [Concomitant]
     Route: 065
  4. PREDNISOLONE [Concomitant]
     Route: 065
  5. IMMUNE GLOBULIN INTRAVENOUS (HUMAN) [Concomitant]
     Route: 065

REACTIONS (10)
  - BACTERIA STOOL IDENTIFIED [None]
  - BLOOD PRESSURE DECREASED [None]
  - CLOSTRIDIUM COLITIS [None]
  - DIARRHOEA [None]
  - ENDOTOXIC SHOCK [None]
  - HEPATIC ENZYME INCREASED [None]
  - KLEBSIELLA INFECTION [None]
  - PYREXIA [None]
  - SEPSIS [None]
  - WHITE BLOOD CELL COUNT INCREASED [None]
